FAERS Safety Report 7736740-6 (Version None)
Quarter: 2011Q3

REPORT INFORMATION
  Report Type: 
  Country: None (occurrence: None)
  Receive Date: 20110908
  Receipt Date: 20110831
  Transmission Date: 20111222
  Serious: Yes (Hospitalization)
  Sender: FDA-Public Use
  Company Number: PHHY2011FR78290

PATIENT
  Sex: Female

DRUGS (10)
  1. ZOLPIDEM [Concomitant]
     Dosage: 3.5 DF DAILY
     Route: 048
  2. ZOLPIDEM [Concomitant]
     Dosage: 1 DF/ DAY
     Dates: start: 20110614
  3. LEVOTHYROXINE SODIUM [Concomitant]
  4. CITALOPRAM HYDROBROMIDE [Concomitant]
     Dosage: 30 MG / DAY
  5. CLONAZEPAM [Concomitant]
     Dosage: 15 DRP, PER DAY
  6. CITALOPRAM HYDROBROMIDE [Concomitant]
     Dosage: 20 MG, UNK
     Dates: start: 20110614
  7. ATHYMIL [Concomitant]
  8. ERYTHROMYCINE [Concomitant]
     Indication: EAR INFECTION
     Dates: start: 20110610
  9. TEGRETOL [Suspect]
     Dosage: 200 MG, BID
     Dates: end: 20110613
  10. TEGRETOL [Suspect]
     Dosage: 200 MG, DAY
     Dates: start: 20110616

REACTIONS (4)
  - BALANCE DISORDER [None]
  - NYSTAGMUS [None]
  - DRUG LEVEL INCREASED [None]
  - DYSARTHRIA [None]
